FAERS Safety Report 19516677 (Version 6)
Quarter: 2022Q1

REPORT INFORMATION
  Report Type: Spontaneous
  Country: GB (occurrence: GB)
  Receive Date: 20210709
  Receipt Date: 20220216
  Transmission Date: 20220423
  Serious: Yes (Hospitalization, Other)
  Sender: FDA-Public Use
  Company Number: GB-002147023-NVSC2021GB141387

PATIENT
  Age: 8 Year
  Sex: Male
  Weight: 20.2 kg

DRUGS (100)
  1. CYCLOPHOSPHAMIDE [Suspect]
     Active Substance: CYCLOPHOSPHAMIDE
     Indication: Neoplasm malignant
     Dosage: 210 MG (1 IN 1 DAY)
     Route: 042
     Dates: start: 20210504
  2. CYCLOPHOSPHAMIDE [Suspect]
     Active Substance: CYCLOPHOSPHAMIDE
     Indication: Neuroblastoma
     Dosage: 210 MG QD (1 IN 1 DAY) (4 DAYS)
     Route: 042
     Dates: start: 20210401, end: 20210405
  3. CYCLOPHOSPHAMIDE [Suspect]
     Active Substance: CYCLOPHOSPHAMIDE
     Route: 065
     Dates: start: 20190202, end: 20190413
  4. CYCLOPHOSPHAMIDE [Suspect]
     Active Substance: CYCLOPHOSPHAMIDE
     Route: 065
     Dates: start: 20190424, end: 20210522
  5. CYCLOPHOSPHAMIDE [Suspect]
     Active Substance: CYCLOPHOSPHAMIDE
     Dosage: MAXIMUM 5 DAYS EVERY 21 DAYS
     Route: 042
  6. TOPOTECAN HYDROCHLORIDE [Suspect]
     Active Substance: TOPOTECAN HYDROCHLORIDE
     Indication: Neoplasm malignant
     Dosage: 0.64 MG (1 IN 1 DAY)
     Route: 065
     Dates: start: 20210504
  7. TOPOTECAN HYDROCHLORIDE [Suspect]
     Active Substance: TOPOTECAN HYDROCHLORIDE
     Indication: Neuroblastoma
     Dosage: 0.63 MG/M2, QD
     Route: 042
     Dates: start: 20210628
  8. TOPOTECAN HYDROCHLORIDE [Suspect]
     Active Substance: TOPOTECAN HYDROCHLORIDE
     Indication: Refractory cancer
     Dosage: 0.64 MG (1 IN 1 DAY)
     Route: 042
     Dates: start: 20210504
  9. TOPOTECAN HYDROCHLORIDE [Suspect]
     Active Substance: TOPOTECAN HYDROCHLORIDE
     Indication: Recurrent cancer
     Dosage: 0.64 MG (1 IN 1 DAY)
     Route: 042
     Dates: start: 20210401, end: 20210405
  10. TOPOTECAN HYDROCHLORIDE [Suspect]
     Active Substance: TOPOTECAN HYDROCHLORIDE
     Dosage: 0.65 MG/M2, QD
     Route: 042
     Dates: start: 20210601, end: 20210605
  11. TOPOTECAN HYDROCHLORIDE [Suspect]
     Active Substance: TOPOTECAN HYDROCHLORIDE
     Dosage: 0.64 MG/M2, QD
     Route: 042
     Dates: start: 20210401, end: 20210508
  12. TOPOTECAN HYDROCHLORIDE [Suspect]
     Active Substance: TOPOTECAN HYDROCHLORIDE
     Dosage: 0.75 MG/M2 (MAXIMUM 5 DAYS EVERY 21 DAYS)
     Route: 042
  13. VENETOCLAX [Suspect]
     Active Substance: VENETOCLAX
     Indication: Neoplasm malignant
     Dosage: 350 MG (350 MG- 2) (8 DAYS), TABLET
     Route: 048
     Dates: start: 20210330, end: 20210407
  14. VENETOCLAX [Suspect]
     Active Substance: VENETOCLAX
     Indication: Recurrent cancer
     Dosage: 350 MG (350 MG- 2)?TABLET
     Route: 065
     Dates: start: 20210504
  15. VENETOCLAX [Suspect]
     Active Substance: VENETOCLAX
     Dosage: 350 MG, QD
     Route: 048
     Dates: start: 20210331
  16. VENETOCLAX [Suspect]
     Active Substance: VENETOCLAX
     Dosage: 170 MG, QD
     Route: 048
     Dates: start: 20210330, end: 20210330
  17. CARBOPLATIN [Suspect]
     Active Substance: CARBOPLATIN
     Indication: Neuroblastoma
     Route: 065
     Dates: start: 20190202, end: 20190413
  18. CISPLATIN [Suspect]
     Active Substance: CISPLATIN
     Indication: Neuroblastoma
     Route: 065
     Dates: start: 20190202, end: 20190413
  19. VINCRISTINE [Suspect]
     Active Substance: VINCRISTINE
     Indication: Neuroblastoma
     Route: 065
     Dates: start: 20190202, end: 20190413
  20. DINUTUXIMAB BETA [Suspect]
     Active Substance: DINUTUXIMAB BETA
     Indication: Neuroblastoma
     Route: 065
     Dates: start: 20190424, end: 20200522
  21. ISOTRETINOIN [Suspect]
     Active Substance: ISOTRETINOIN
     Indication: Neuroblastoma
     Route: 065
     Dates: start: 20190424, end: 20200522
  22. MELPHALAN [Suspect]
     Active Substance: MELPHALAN
     Indication: Neuroblastoma
     Route: 065
     Dates: start: 20190424, end: 20200522
  23. TEMOZOLOMIDE [Suspect]
     Active Substance: TEMOZOLOMIDE
     Indication: Neuroblastoma
     Route: 065
     Dates: start: 20200623, end: 20200724
  24. ETOPOSIDE [Suspect]
     Active Substance: ETOPOSIDE
     Indication: Neuroblastoma
     Route: 065
     Dates: start: 20190202, end: 20190413
  25. BUSULFAN [Suspect]
     Active Substance: BUSULFAN
     Indication: Neuroblastoma
     Route: 065
     Dates: start: 20190424, end: 20200522
  26. MORPHINE [Concomitant]
     Active Substance: MORPHINE
     Indication: Product used for unknown indication
     Dosage: 30 MG, Q4H
     Route: 048
     Dates: start: 20210324, end: 20210504
  27. MORPHINE [Concomitant]
     Active Substance: MORPHINE
     Dosage: 10 MG, PRN
     Route: 048
     Dates: start: 20210629
  28. MORPHINE [Concomitant]
     Active Substance: MORPHINE
     Dosage: 10 MG, PRN
     Route: 048
     Dates: start: 20210806
  29. ALLOPURINOL [Concomitant]
     Active Substance: ALLOPURINOL
     Indication: Tumour lysis syndrome
     Dosage: 240 MG (1 IN 1 DAY)
     Route: 048
     Dates: start: 20210330, end: 20210404
  30. CHLORPHENIRAMINE MALEATE [Concomitant]
     Active Substance: CHLORPHENIRAMINE MALEATE
     Indication: Allergic transfusion reaction
     Dosage: 4 MG (AS REQUIRED)
     Route: 048
     Dates: start: 20210601
  31. CHLORPHENIRAMINE MALEATE [Concomitant]
     Active Substance: CHLORPHENIRAMINE MALEATE
     Indication: Hypersensitivity
     Dosage: 4 MG (AS REQUIRED)
     Route: 042
     Dates: start: 20210329
  32. CHLORPHENIRAMINE MALEATE [Concomitant]
     Active Substance: CHLORPHENIRAMINE MALEATE
     Indication: Allergy prophylaxis
     Dosage: 2.5 MG, PRN
     Route: 042
     Dates: start: 20210412, end: 20210412
  33. CHLORPHENIRAMINE MALEATE [Concomitant]
     Active Substance: CHLORPHENIRAMINE MALEATE
     Dosage: 5 MG, PRN
     Route: 042
     Dates: start: 20210713
  34. CHOLECALCIFEROL [Concomitant]
     Active Substance: CHOLECALCIFEROL
     Indication: Vitamin supplementation
     Dosage: 1 DOSAGE FORM, TIW
     Route: 048
     Dates: start: 20210331
  35. COTRIMOXAZOLE [Concomitant]
     Active Substance: SULFAMETHOXAZOLE\TRIMETHOPRIM
     Indication: Antibiotic prophylaxis
     Dosage: 360 MG (1 IN 1 DAY)
     Route: 048
     Dates: start: 20210331
  36. CYCLIZINE [Concomitant]
     Active Substance: CYCLIZINE
     Indication: Antiemetic supportive care
     Dosage: 75 MG (25 MG,3 IN 1 DAY)
     Route: 042
     Dates: start: 20210330
  37. CYCLIZINE [Concomitant]
     Active Substance: CYCLIZINE
     Dosage: 75 MG (25 MG,3 IN 1 DAY)
     Route: 048
     Dates: start: 20210602
  38. CYCLIZINE [Concomitant]
     Active Substance: CYCLIZINE
     Dosage: 20 MG, QD, 3 IN 1 DAY
     Route: 048
     Dates: start: 20210921
  39. DEXAMETHASONE [Concomitant]
     Active Substance: DEXAMETHASONE
     Indication: Analgesic therapy
     Dosage: 4 MG (2 MG,2 IN 1 DAY)
     Route: 042
     Dates: start: 20210406
  40. DEXAMETHASONE [Concomitant]
     Active Substance: DEXAMETHASONE
     Indication: Chemotherapy side effect prophylaxis
     Route: 048
     Dates: start: 20210531, end: 20210606
  41. DEXAMETHASONE [Concomitant]
     Active Substance: DEXAMETHASONE
     Indication: Prophylaxis of nausea and vomiting
     Dosage: 4 MG, QD
     Route: 042
     Dates: start: 20210504, end: 20210605
  42. DEXAMETHASONE [Concomitant]
     Active Substance: DEXAMETHASONE
     Indication: Nausea
     Dosage: 8 MG, QD
     Route: 048
     Dates: start: 20210330, end: 20210403
  43. DEXAMETHASONE [Concomitant]
     Active Substance: DEXAMETHASONE
     Indication: Prophylaxis
     Dosage: 6 MG, QD
     Route: 042
     Dates: start: 20210403, end: 20210406
  44. DEXAMETHASONE [Concomitant]
     Active Substance: DEXAMETHASONE
     Indication: Illness
     Dosage: 6 MG, QD
     Route: 048
     Dates: start: 20210726
  45. DEXAMETHASONE [Concomitant]
     Active Substance: DEXAMETHASONE
     Dosage: 4 MG, QD
     Route: 048
     Dates: start: 20210406, end: 20210407
  46. DEXAMETHASONE [Concomitant]
     Active Substance: DEXAMETHASONE
     Dosage: 4 MG, QD
     Route: 042
     Dates: start: 20210531, end: 20210606
  47. DEXAMETHASONE [Concomitant]
     Active Substance: DEXAMETHASONE
     Dosage: 3.8 MG, QD
     Route: 048
     Dates: start: 20210605, end: 20210609
  48. DEXAMETHASONE [Concomitant]
     Active Substance: DEXAMETHASONE
     Route: 048
     Dates: start: 20210627
  49. DEXAMETHASONE [Concomitant]
     Active Substance: DEXAMETHASONE
     Route: 048
     Dates: end: 20210407
  50. DOCUSATE [Concomitant]
     Active Substance: DOCUSATE
     Indication: Constipation prophylaxis
     Dosage: 300 MG (100 MG, 3 IN 1 DAY)
     Route: 048
     Dates: start: 20210508
  51. DOCUSATE [Concomitant]
     Active Substance: DOCUSATE
     Indication: Faeces hard
     Dosage: 1000 MG, QD
     Route: 048
     Dates: start: 20210329, end: 20210508
  52. DOCUSATE [Concomitant]
     Active Substance: DOCUSATE
     Indication: Constipation
     Dosage: 300 MG, QD
     Route: 048
     Dates: start: 20210628
  53. DOCUSATE [Concomitant]
     Active Substance: DOCUSATE
     Dosage: 50 MG, QD
     Route: 048
     Dates: start: 20210726
  54. DOCUSATE [Concomitant]
     Active Substance: DOCUSATE
     Dosage: 50 MG (2 IN 1 D) BID
  55. DOCUSATE [Concomitant]
     Active Substance: DOCUSATE
     Dosage: 300 (100 MG, TID)
     Route: 048
  56. GABAPENTIN [Concomitant]
     Active Substance: GABAPENTIN
     Indication: Pain
     Dosage: 600 MG (200 MG, 3 IN 1 DAY)
     Route: 048
     Dates: start: 20210329
  57. HEPARIN [Concomitant]
     Active Substance: HEPARIN SODIUM
     Indication: Product used for unknown indication
     Dosage: 10 UNITS/ML (3 IN 1 DAY)
     Route: 042
     Dates: start: 20210329
  58. LEVOMEPROMAZINE [Concomitant]
     Active Substance: LEVOMEPROMAZINE
     Indication: Antiemetic supportive care
     Dosage: 2.2 MG (1.1 MG, 2 IN 1 DAY)
     Route: 042
     Dates: start: 20210601
  59. LEVOMEPROMAZINE [Concomitant]
     Active Substance: LEVOMEPROMAZINE
     Indication: Prophylaxis of nausea and vomiting
     Dosage: 2.2 MG, QD
     Route: 042
     Dates: start: 20210628
  60. LEVOMEPROMAZINE [Concomitant]
     Active Substance: LEVOMEPROMAZINE
     Dosage: 2.2 MG, QD
     Route: 042
     Dates: start: 20210507, end: 20210508
  61. LEVOMEPROMAZINE [Concomitant]
     Active Substance: LEVOMEPROMAZINE
     Dosage: 6 MG, BID (3 MG, 2 IN 1 D)
     Route: 048
     Dates: start: 20210921
  62. LEVOMEPROMAZINE [Concomitant]
     Active Substance: LEVOMEPROMAZINE
     Route: 042
  63. LEVOMEPROMAZINE [Concomitant]
     Active Substance: LEVOMEPROMAZINE
     Dosage: 2.2 MG (1.1 MG, 2 IN D)
     Route: 065
     Dates: start: 20210628
  64. LIPEGFILGRASTIM [Concomitant]
     Active Substance: LIPEGFILGRASTIM
     Indication: Blood disorder prophylaxis
     Dosage: 2.5 MG (5 MG, 3 IN 1 DAY)
     Route: 058
     Dates: start: 20210509, end: 20210510
  65. LIPEGFILGRASTIM [Concomitant]
     Active Substance: LIPEGFILGRASTIM
     Indication: Prophylaxis
     Dosage: 2.5 MG, STAT
     Route: 058
     Dates: start: 20210703
  66. LIPEGFILGRASTIM [Concomitant]
     Active Substance: LIPEGFILGRASTIM
     Dosage: 2.5 MG
     Route: 065
     Dates: start: 20210703
  67. METOCLOPRAMIDE [Concomitant]
     Active Substance: METOCLOPRAMIDE
     Indication: Nausea
     Dosage: 15 MG (5 MG, 3 IN 1 DAY)
     Route: 048
     Dates: start: 20210508
  68. METOCLOPRAMIDE [Concomitant]
     Active Substance: METOCLOPRAMIDE
     Indication: Prophylaxis
     Dosage: 15 MG (5 MG, 3 IN 1 DAY)
     Route: 042
     Dates: start: 20210330, end: 20210507
  69. METOCLOPRAMIDE [Concomitant]
     Active Substance: METOCLOPRAMIDE
     Indication: Antiemetic supportive care
     Route: 042
     Dates: start: 20210919
  70. METOCLOPRAMIDE [Concomitant]
     Active Substance: METOCLOPRAMIDE
     Indication: Prophylaxis of nausea and vomiting
     Dosage: 15 MG (3 MG, 3 IN 1 D)
     Route: 042
  71. MIDAZOLAM [Concomitant]
     Active Substance: MIDAZOLAM
     Indication: Pain
     Dosage: 2 MG (AS REQUIRED)
     Route: 048
     Dates: start: 20210321
  72. MORPHINE [Concomitant]
     Active Substance: MORPHINE
     Indication: Pain
     Dosage: 10 MG (AS REQUIRED)
     Route: 048
     Dates: start: 20210509
  73. MORPHINE [Concomitant]
     Active Substance: MORPHINE
     Indication: Pain in extremity
     Dosage: 40 MG (20 MG, 2 IN 1 DAY)
     Route: 048
     Dates: start: 20210517
  74. MORPHINE [Concomitant]
     Active Substance: MORPHINE
     Dosage: 60 MG, QD (SUSTAINED RELEASE)
     Route: 048
     Dates: start: 20210512, end: 20210517
  75. MORPHINE [Concomitant]
     Active Substance: MORPHINE
     Dosage: 20 MG, PRN
     Route: 048
     Dates: start: 20210504, end: 20210509
  76. MORPHINE [Concomitant]
     Active Substance: MORPHINE
     Dosage: 120 MG, QD (SUSTAINED RELEASE)
     Route: 048
     Dates: start: 20210504, end: 20210509
  77. MORPHINE [Concomitant]
     Active Substance: MORPHINE
     Dosage: 40 MG, QD (SUSTAINED RELEASE)
     Route: 048
     Dates: start: 20210715
  78. MORPHINE [Concomitant]
     Active Substance: MORPHINE
     Dosage: 10 MG, PRN
     Route: 048
     Dates: start: 20210509
  79. MORPHINE [Concomitant]
     Active Substance: MORPHINE
     Dosage: 80 MG, QD (SUSTAINED RELEASE)
     Route: 048
     Dates: start: 20210509, end: 20210512
  80. MORPHINE [Concomitant]
     Active Substance: MORPHINE
     Dosage: 10 MG (AS REQUIRED)
     Route: 048
     Dates: start: 20210509
  81. MORPHINE [Concomitant]
     Active Substance: MORPHINE
     Dosage: 30 MG, BID (10 MG 3 IN 1 DAY)
     Route: 048
     Dates: start: 20210628
  82. MORPHINE [Concomitant]
     Active Substance: MORPHINE
     Dosage: 40 MG, QD (SUSTAINED RELEASE)
     Route: 048
  83. MORPHINE [Concomitant]
     Active Substance: MORPHINE
     Dosage: 10 MG, PRN
     Route: 048
     Dates: start: 20210628
  84. MOVICOL [Concomitant]
     Active Substance: POLYETHYLENE GLYCOL 3350\POTASSIUM CHLORIDE\SODIUM BICARBONATE\SODIUM CHLORIDE
     Indication: Constipation
     Dosage: UNK (1-2 SACHETS AS REQUIRED)
     Route: 048
     Dates: start: 20210517
  85. SODIUM CHLORIDE [Concomitant]
     Active Substance: SODIUM CHLORIDE
     Indication: Tumour lysis syndrome
     Dosage: UNK (375 ML)
     Route: 042
     Dates: start: 20210330, end: 20210407
  86. OMEPRAZOLE [Concomitant]
     Active Substance: OMEPRAZOLE
     Indication: Dyspepsia
     Dosage: 20 MG (20 MG,1 IN 1 DAY)
     Route: 048
     Dates: start: 20210310
  87. ONDANSETRON [Concomitant]
     Active Substance: ONDANSETRON
     Indication: Antiemetic supportive care
     Dosage: 12 MG (4 MG,3 IN 1 DAY)
     Route: 042
     Dates: start: 20210330
  88. ONDANSETRON [Concomitant]
     Active Substance: ONDANSETRON
     Indication: Prophylaxis of nausea and vomiting
     Dosage: 12 MG (4 MG,3 IN 1 DAY)
     Route: 042
     Dates: start: 20210602
  89. TINZAPARIN [Concomitant]
     Active Substance: TINZAPARIN
     Indication: Anticoagulant therapy
     Dosage: 6000 IU (1 DAY)
     Route: 058
     Dates: start: 20210526
  90. SCOPOLAMINE [Concomitant]
     Active Substance: SCOPOLAMINE
     Indication: Prophylaxis of nausea and vomiting
     Dosage: 0.5 MG, PRN
     Route: 061
     Dates: start: 20210630
  91. SCOPOLAMINE [Concomitant]
     Active Substance: SCOPOLAMINE
     Dosage: 500 MG, CONT
     Route: 062
     Dates: start: 20210508, end: 20210509
  92. SCOPOLAMINE [Concomitant]
     Active Substance: SCOPOLAMINE
     Dosage: 1 MG, PRN
     Route: 061
     Dates: start: 20210601
  93. SCOPOLAMINE [Concomitant]
     Active Substance: SCOPOLAMINE
     Dosage: 0.5 MG, PRN
     Route: 061
     Dates: start: 20210922
  94. ACETAMINOPHEN [Concomitant]
     Active Substance: ACETAMINOPHEN
     Indication: Pain prophylaxis
     Route: 048
     Dates: start: 20210324
  95. ACETAMINOPHEN [Concomitant]
     Active Substance: ACETAMINOPHEN
     Dosage: 330 MG, QD
     Route: 048
     Dates: start: 20210629
  96. ACETAMINOPHEN [Concomitant]
     Active Substance: ACETAMINOPHEN
     Dates: start: 20210324
  97. CIPROFLOXACIN [Concomitant]
     Active Substance: CIPROFLOXACIN
     Indication: Soft tissue infection
     Dosage: 500 MG, 2 IN 1 D
     Route: 048
     Dates: start: 20210924
  98. LINEZOLID [Concomitant]
     Active Substance: LINEZOLID
     Indication: Soft tissue infection
     Dosage: 200 MG, 3 IN 1 D
     Route: 065
     Dates: start: 20210913
  99. PIPERACILLIN SODIUM\TAZOBACTAM SODIUM [Concomitant]
     Active Substance: PIPERACILLIN SODIUM\TAZOBACTAM SODIUM
     Indication: Infection
     Dosage: 1.8 G, QD
     Route: 042
     Dates: start: 20210806
  100. TEICOPLANIN [Concomitant]
     Active Substance: TEICOPLANIN
     Indication: Infection
     Route: 042
     Dates: start: 20210808

REACTIONS (11)
  - Ear pain [Unknown]
  - Cellulitis [Unknown]
  - Febrile neutropenia [Not Recovered/Not Resolved]
  - Pyrexia [Not Recovered/Not Resolved]
  - Vomiting [Unknown]
  - Oropharyngeal pain [Unknown]
  - White blood cell count decreased [Unknown]
  - Product use issue [Unknown]
  - Groin pain [Unknown]
  - Nodule [Unknown]
  - Palpitations [Unknown]

NARRATIVE: CASE EVENT DATE: 20210609
